FAERS Safety Report 21885604 (Version 1)
Quarter: 2023Q1

REPORT INFORMATION
  Report Type: Spontaneous
  Country: AT (occurrence: AT)
  Receive Date: 20230119
  Receipt Date: 20230119
  Transmission Date: 20230417
  Serious: Yes (Death)
  Sender: FDA-Public Use
  Company Number: AT-ROCHE-3234039

PATIENT
  Age: 11 Year
  Sex: Male

DRUGS (8)
  1. CYTARABINE [Suspect]
     Active Substance: CYTARABINE
     Indication: Medulloblastoma recurrent
     Dosage: 0-3 YEARS 25 MG, 3-9 YEARS 35 MG, }9 YEARS 50 MG
     Route: 065
  2. CELECOXIB [Suspect]
     Active Substance: CELECOXIB
     Indication: Medulloblastoma recurrent
     Dosage: UNK, BID, 0.5 DAY
     Route: 048
  3. BEVACIZUMAB [Suspect]
     Active Substance: BEVACIZUMAB
     Indication: Medulloblastoma recurrent
     Dosage: 10 MILLIGRAM/KILOGRAM, Q2W
     Route: 042
  4. THALIDOMIDE [Suspect]
     Active Substance: THALIDOMIDE
     Indication: Medulloblastoma recurrent
     Dosage: 3 MILLIGRAM/KILOGRAM, QD
     Route: 048
  5. CYCLOPHOSPHAMIDE [Suspect]
     Active Substance: CYCLOPHOSPHAMIDE
     Indication: Medulloblastoma recurrent
     Dosage: MAX. 100 MG
     Route: 065
  6. ETOPOSIDE [Suspect]
     Active Substance: ETOPOSIDE
     Indication: Medulloblastoma recurrent
     Dosage: 35-50 MG/M2 DAILY
     Route: 048
  7. ETOPOSIDE [Suspect]
     Active Substance: ETOPOSIDE
     Dosage: {1 YEARS 0.25 MG DAILY FOR 5 DAYS
     Route: 065
  8. FENOFIBRATE [Suspect]
     Active Substance: FENOFIBRATE
     Indication: Medulloblastoma recurrent
     Dosage: 90 MILLIGRAM/SQ. METER, QD, MAX. 200 MG
     Route: 048

REACTIONS (1)
  - Sepsis [Fatal]
